FAERS Safety Report 22174906 (Version 1)
Quarter: 2023Q2

REPORT INFORMATION
  Report Type: Spontaneous
  Country: RU (occurrence: RU)
  Receive Date: 20230405
  Receipt Date: 20230405
  Transmission Date: 20230721
  Serious: Yes (Other)
  Sender: FDA-Public Use
  Company Number: RU-ABBOTT-2023A-1361719

PATIENT
  Age: 7 Year
  Sex: Male
  Weight: 20 kg

DRUGS (5)
  1. PANCREATIN [Suspect]
     Active Substance: PANCRELIPASE
     Indication: Cystic fibrosis
     Route: 048
     Dates: start: 202201, end: 20230210
  2. URSODIOL [Concomitant]
     Active Substance: URSODIOL
     Indication: Cystic fibrosis
     Route: 048
     Dates: start: 201810
  3. BISEPTOL [Concomitant]
     Active Substance: SULFAMETHOXAZOLE\TRIMETHOPRIM
     Indication: Cystic fibrosis
     Route: 048
     Dates: start: 202003
  4. PULMOZYME [Concomitant]
     Active Substance: DORNASE ALFA
     Indication: Cystic fibrosis
     Route: 055
     Dates: start: 201611
  5. AZITHROMYCIN [Concomitant]
     Active Substance: AZITHROMYCIN
     Indication: Cystic fibrosis
     Route: 048
     Dates: start: 201811

REACTIONS (5)
  - Dyspepsia [Recovered/Resolved with Sequelae]
  - Anger [Recovered/Resolved with Sequelae]
  - Abdominal pain [Recovered/Resolved with Sequelae]
  - Abdominal distension [Recovered/Resolved with Sequelae]
  - Steatorrhoea [Recovered/Resolved with Sequelae]

NARRATIVE: CASE EVENT DATE: 20230201
